FAERS Safety Report 8287720-6 (Version None)
Quarter: 2012Q2

REPORT INFORMATION
  Report Type: 
  Country: None (occurrence: None)
  Receive Date: 20120416
  Receipt Date: 20120410
  Transmission Date: 20120825
  Serious: Yes (Hospitalization, Other)
  Sender: FDA-Public Use
  Company Number: US-FRI-1000029714

PATIENT
  Age: 68 Year
  Sex: Female

DRUGS (7)
  1. NAMENDA [Suspect]
     Dosage: 50 MG
     Route: 048
     Dates: start: 20110101, end: 20120101
  2. NAMENDA [Suspect]
     Dosage: 30 MG
     Route: 048
     Dates: start: 20120101
  3. LEXAPRO [Concomitant]
     Indication: DEPRESSION
  4. IMODIUM [Concomitant]
     Indication: CROHN'S DISEASE
  5. NAMENDA [Suspect]
     Indication: MIGRAINE
     Route: 048
     Dates: start: 20110301, end: 20110101
  6. ATIVAN [Concomitant]
     Indication: ANXIETY
  7. ACTONEL [Concomitant]

REACTIONS (6)
  - DEPRESSION [None]
  - SUICIDAL IDEATION [None]
  - SUICIDE ATTEMPT [None]
  - MANIA [None]
  - OVERDOSE [None]
  - OFF LABEL USE [None]
